FAERS Safety Report 25706078 (Version 2)
Quarter: 2025Q3

REPORT INFORMATION
  Report Type: Spontaneous
  Country: EU (occurrence: EU)
  Receive Date: 20250820
  Receipt Date: 20250909
  Transmission Date: 20251020
  Serious: Yes (Life-Threatening, Other)
  Sender: TEVA
  Company Number: EU-EMB-M202403458-1

PATIENT
  Sex: Male
  Weight: 3.4 kg

DRUGS (2)
  1. VENLAFAXINE [Suspect]
     Active Substance: VENLAFAXINE HYDROCHLORIDE
     Indication: Depression
     Dosage: VENLAFAXINE RETARD
     Route: 064
     Dates: start: 202311, end: 202408
  2. NasenSpray [Concomitant]
     Indication: Nasopharyngitis
     Route: 064

REACTIONS (2)
  - Neonatal respiratory arrest [Recovered/Resolved]
  - Foetal exposure during pregnancy [Unknown]

NARRATIVE: CASE EVENT DATE: 20240801
